FAERS Safety Report 9371928 (Version 4)
Quarter: 2014Q1

REPORT INFORMATION
  Report Type: Report from Study
  Country: DE (occurrence: DE)
  Receive Date: 20130627
  Receipt Date: 20140224
  Transmission Date: 20141002
  Serious: Yes (Hospitalization)
  Sender: FDA-Public Use
  Company Number: DE-SANOFI-AVENTIS-2013SA063539

PATIENT
  Age: 75 Year
  Sex: Male
  Weight: 86 kg

DRUGS (7)
  1. JEVTANA [Suspect]
     Indication: HORMONE-REFRACTORY PROSTATE CANCER
     Route: 051
     Dates: start: 20130610, end: 20130610
  2. MARCUMAR [Concomitant]
     Indication: ATRIAL FIBRILLATION
     Route: 048
  3. RANITIC [Concomitant]
     Route: 042
  4. CLEMASTINE [Concomitant]
     Route: 042
  5. GRANISETRON [Concomitant]
     Route: 042
  6. DEXAMETHASONE [Concomitant]
     Route: 042
  7. PREDNISONE [Concomitant]
     Route: 048

REACTIONS (10)
  - Neutrophil count decreased [Recovered/Resolved]
  - White blood cell count decreased [Recovered/Resolved]
  - Circulatory collapse [Unknown]
  - Neutropenia [Unknown]
  - General physical health deterioration [Unknown]
  - Asthenia [Unknown]
  - Pyrexia [Recovered/Resolved]
  - Diarrhoea [Recovered/Resolved]
  - Vertigo [Recovered/Resolved]
  - Fatigue [Recovered/Resolved]
